FAERS Safety Report 6401542-X (Version None)
Quarter: 2009Q4

REPORT INFORMATION
  Report Type: 
  Country: None (occurrence: None)
  Receive Date: 20091013
  Receipt Date: 20091013
  Transmission Date: 20100525
  Serious: Yes (Hospitalization)
  Sender: FDA-Public Use
  Company Number: None

PATIENT
  Sex: Female
  Weight: 62.72 kg

DRUGS (1)
  1. RITUXIMAB (MOAB C3B8 ANTI CD20, CHIMERIC) [Suspect]
     Dosage: 652.5 MG

REACTIONS (7)
  - APATHY [None]
  - CENTRAL NERVOUS SYSTEM LESION [None]
  - COMMUNICATION DISORDER [None]
  - COORDINATION ABNORMAL [None]
  - DEPRESSION [None]
  - DISTURBANCE IN ATTENTION [None]
  - WEIGHT DECREASED [None]
